FAERS Safety Report 16939809 (Version 2)
Quarter: 2025Q3

REPORT INFORMATION
  Report Type: Report from Study
  Country: EU (occurrence: EU)
  Receive Date: 20191021
  Receipt Date: 20250718
  Transmission Date: 20251021
  Serious: Yes (Hospitalization, Other)
  Sender: AUROBINDO
  Company Number: EU-AUROBINDO-AUR-APL-2019-067792

PATIENT
  Age: 70 Year
  Sex: Female

DRUGS (4)
  1. ESCITALOPRAM [Interacting]
     Active Substance: ESCITALOPRAM OXALATE
     Indication: Product used for unknown indication
     Route: 065
  2. RIVAROXABAN [Interacting]
     Active Substance: RIVAROXABAN
     Indication: Prophylaxis
     Dosage: 15 MILLIGRAM, ONCE A DAY
     Route: 048
  3. DILTIAZEM [Interacting]
     Active Substance: DILTIAZEM
     Indication: Product used for unknown indication
     Route: 065
  4. CLARITHROMYCIN [Interacting]
     Active Substance: CLARITHROMYCIN
     Indication: Product used for unknown indication
     Route: 065

REACTIONS (2)
  - Gastrointestinal haemorrhage [Unknown]
  - Drug interaction [Unknown]
